FAERS Safety Report 10724532 (Version 2)
Quarter: 2015Q1

REPORT INFORMATION
  Report Type: Spontaneous
  Country: IN (occurrence: IN)
  Receive Date: 20150120
  Receipt Date: 20150128
  Transmission Date: 20150721
  Serious: Yes (Death)
  Sender: FDA-Public Use
  Company Number: IN-IMPAX LABORATORIES, INC-2015-IPXL-00021

PATIENT
  Age: 54 Year
  Sex: Male

DRUGS (1)
  1. METFORMIN HYDROCHLORIDE ER [Suspect]
     Active Substance: METFORMIN HYDROCHLORIDE
     Indication: TYPE 2 DIABETES MELLITUS
     Route: 048

REACTIONS (1)
  - Autoimmune haemolytic anaemia [Fatal]
